FAERS Safety Report 11132166 (Version 1)
Quarter: 2015Q2

REPORT INFORMATION
  Report Type: Spontaneous
  Country: US (occurrence: US)
  Receive Date: 20150522
  Receipt Date: 20150522
  Transmission Date: 20150821
  Serious: No
  Sender: FDA-Public Use
  Company Number: US-MALLINCKRODT-T201501937

PATIENT
  Sex: Female

DRUGS (1)
  1. H.P. ACTHAR [Suspect]
     Active Substance: CORTICOTROPIN
     Indication: NEPHROTIC SYNDROME
     Dosage: 80 UNITS, TWICE WKLY
     Route: 058
     Dates: start: 20150326

REACTIONS (4)
  - Injection site bruising [Unknown]
  - Insomnia [Unknown]
  - Fatigue [Unknown]
  - Emotional disorder [Unknown]

NARRATIVE: CASE EVENT DATE: 2015
